FAERS Safety Report 23575361 (Version 1)
Quarter: 2024Q1

REPORT INFORMATION
  Report Type: Spontaneous
  Country: FR (occurrence: FR)
  Receive Date: 20240228
  Receipt Date: 20240228
  Transmission Date: 20240410
  Serious: Yes (Hospitalization, Other)
  Sender: FDA-Public Use
  Company Number: None

PATIENT
  Age: 46 Year
  Sex: Male
  Weight: 60 kg

DRUGS (4)
  1. VALGANCICLOVIR [Suspect]
     Active Substance: VALGANCICLOVIR
     Indication: Cytomegalovirus colitis
     Dosage: 2 CP 2/D?DAILY DOSE: 4 DOSAGE FORM
     Route: 048
     Dates: start: 20240102, end: 20240110
  2. VALGANCICLOVIR [Suspect]
     Active Substance: VALGANCICLOVIR
     Indication: Cytomegalovirus colitis
     Dosage: DOSAGE REDUCED TO 2 TABS 1/D ?DAILY DOSE: 2 DOSAGE FORM
     Route: 048
     Dates: start: 20240110, end: 20240122
  3. GANCICLOVIR [Suspect]
     Active Substance: GANCICLOVIR
     Indication: Cytomegalovirus colitis
     Dosage: DAILY DOSE: 5 MILLIGRAM/KG
  4. ZYDELIG [Suspect]
     Active Substance: IDELALISIB
     Dates: start: 20231221

REACTIONS (4)
  - Vision blurred [Recovered/Resolved]
  - Confusional state [Recovered/Resolved]
  - Pneumonia [Unknown]
  - Off label use [Recovered/Resolved]

NARRATIVE: CASE EVENT DATE: 20240102
